FAERS Safety Report 9928754 (Version 1)
Quarter: 2014Q1

REPORT INFORMATION
  Report Type: Spontaneous
  Country: US (occurrence: US)
  Receive Date: 20140227
  Receipt Date: 20140227
  Transmission Date: 20141002
  Serious: Yes (Hospitalization)
  Sender: FDA-Public Use
  Company Number: US-BAYER-2014-029786

PATIENT
  Age: 29 Year
  Sex: Female
  Weight: 59.77 kg

DRUGS (6)
  1. YASMIN [Suspect]
  2. MAXALT [Concomitant]
     Indication: HEADACHE
     Dosage: 1 PRN
     Route: 048
  3. PROBIOTICA [Concomitant]
     Dosage: 1, QD
     Route: 048
  4. SAM-E [Concomitant]
     Dosage: 1-2 DAILY
  5. DURAGESIC [Concomitant]
     Indication: CHEST PAIN
  6. FLEXERIL [Concomitant]

REACTIONS (2)
  - Pulmonary embolism [None]
  - Deep vein thrombosis [None]
